FAERS Safety Report 5478538-8 (Version None)
Quarter: 2007Q3

REPORT INFORMATION
  Report Type: 
  Country: None (occurrence: None)
  Receive Date: 20070726
  Receipt Date: 20070719
  Transmission Date: 20080115
  Serious: Yes (Other)
  Sender: FDA-Public Use
  Company Number: US-TYCO HEALTHCARE/MALLINCKRODT-T200700804

PATIENT

DRUGS (2)
  1. ACETAMINOPHEN AND OXYCODONE HCL [Suspect]
     Indication: PAIN
     Dosage: 1 TABLET, EVERY 6 HOURS
     Route: 048
     Dates: start: 20040101, end: 20040101
  2. POTASSIUM CHLORIDE [Concomitant]
     Indication: RENAL IMPAIRMENT
     Dosage: 10 MEQ, QD
     Route: 048
     Dates: start: 19940101

REACTIONS (5)
  - BLINDNESS [None]
  - EYE HAEMORRHAGE [None]
  - MACULAR OEDEMA [None]
  - SCOTOMA [None]
  - VISUAL DISTURBANCE [None]
